FAERS Safety Report 12272009 (Version 1)
Quarter: 2016Q2

REPORT INFORMATION
  Report Type: Spontaneous
  Country: US (occurrence: US)
  Receive Date: 20160415
  Receipt Date: 20160415
  Transmission Date: 20160815
  Serious: No
  Sender: FDA-Public Use
  Company Number: US-FERRINGPH-2015FE02499

PATIENT
  Age: 77 Year
  Sex: Male
  Weight: 58 kg

DRUGS (6)
  1. FIRMAGON [Suspect]
     Active Substance: DEGARELIX ACETATE
     Indication: PROSTATE CANCER
     Dosage: 240 MG, UNK
     Dates: start: 20150702
  2. SAW PALMETTO                       /00833501/ [Concomitant]
     Active Substance: SAW PALMETTO
  3. FIRMAGON [Suspect]
     Active Substance: DEGARELIX ACETATE
     Dosage: 80 MG,MONTHLY
     Dates: start: 20150801
  4. COENZYME Q10 [Concomitant]
     Active Substance: UBIDECARENONE
  5. TAMSULOSINE [Concomitant]
     Active Substance: TAMSULOSIN HYDROCHLORIDE
     Dosage: 1 UNK, DAILY
  6. CRANBERRY JUICE [Concomitant]
     Active Substance: CRANBERRY JUICE

REACTIONS (5)
  - Injection site swelling [Not Recovered/Not Resolved]
  - Injection site mass [Not Recovered/Not Resolved]
  - Pollakiuria [Not Recovered/Not Resolved]
  - Injection site induration [Not Recovered/Not Resolved]
  - Diarrhoea [Not Recovered/Not Resolved]

NARRATIVE: CASE EVENT DATE: 20150704
